FAERS Safety Report 6341643-8 (Version None)
Quarter: 2009Q3

REPORT INFORMATION
  Report Type: 
  Country: None (occurrence: None)
  Receive Date: 20090904
  Receipt Date: 20090825
  Transmission Date: 20100115
  Serious: Yes (Hospitalization)
  Sender: FDA-Public Use
  Company Number: DE-AMGEN-US361961

PATIENT
  Age: 73 Year
  Sex: Male

DRUGS (4)
  1. ENBREL [Suspect]
     Indication: RHEUMATOID ARTHRITIS
     Route: 058
     Dates: start: 20090710
  2. METHOTREXATE [Suspect]
     Indication: RHEUMATOID ARTHRITIS
     Route: 058
     Dates: end: 20090701
  3. CELEBREX [Concomitant]
     Dosage: UNKNOWN
     Route: 065
  4. GLUCOCORTICOIDS [Concomitant]
     Dosage: UNKNOWN
     Route: 065

REACTIONS (4)
  - HYPERKERATOSIS [None]
  - INFLAMMATION OF WOUND [None]
  - INJURY [None]
  - WOUND [None]
